FAERS Safety Report 25422804 (Version 1)
Quarter: 2025Q2

REPORT INFORMATION
  Report Type: Spontaneous
  Country: US (occurrence: None)
  Receive Date: 20250610
  Receipt Date: 20250610
  Transmission Date: 20250717
  Serious: Yes (Other)
  Sender: FDA-CTU
  Company Number: None

PATIENT
  Age: 44 Year
  Sex: Female
  Weight: 73.8 kg

DRUGS (1)
  1. AIMOVIG [Suspect]
     Active Substance: ERENUMAB-AOOE
     Indication: Migraine
     Route: 058
     Dates: start: 20250603, end: 20250603

REACTIONS (10)
  - Injection site erythema [None]
  - Injection site swelling [None]
  - Pharyngeal inflammation [None]
  - Ear pain [None]
  - Electric shock sensation [None]
  - Facial paresis [None]
  - Facial paralysis [None]
  - Vision blurred [None]
  - Dystonia [None]
  - Injection site pruritus [None]

NARRATIVE: CASE EVENT DATE: 20250603
